FAERS Safety Report 7656224-3 (Version None)
Quarter: 2011Q3

REPORT INFORMATION
  Report Type: 
  Country: None (occurrence: None)
  Receive Date: 20110804
  Receipt Date: 20110721
  Transmission Date: 20111222
  Serious: Yes (Other)
  Sender: FDA-Public Use
  Company Number: GB-UCBSA-036540

PATIENT
  Age: 18 Year
  Sex: Female

DRUGS (2)
  1. KEPPRA [Suspect]
     Indication: EPILEPSY
     Route: 048
     Dates: start: 20110207, end: 20110313
  2. LAMOTRIGINE [Concomitant]
     Indication: EPILEPSY
     Route: 048
     Dates: start: 20071210

REACTIONS (5)
  - HEADACHE [None]
  - FEELING DRUNK [None]
  - ANXIETY [None]
  - GAIT DISTURBANCE [None]
  - SUICIDAL IDEATION [None]
